FAERS Safety Report 25124436 (Version 1)
Quarter: 2025Q1

REPORT INFORMATION
  Report Type: Spontaneous
  Country: CN (occurrence: CN)
  Receive Date: 20250326
  Receipt Date: 20250326
  Transmission Date: 20250408
  Serious: Yes (Hospitalization, Other)
  Sender: EXELA PHARMA SCIENCES
  Company Number: CN-EXELAPHARMA-2025EXLA00026

PATIENT
  Age: 45 Year
  Sex: Male

DRUGS (12)
  1. FENTANYL CITRATE [Suspect]
     Active Substance: FENTANYL CITRATE
     Indication: Abdominal pain upper
     Route: 062
     Dates: start: 20231227, end: 20240102
  2. FENTANYL CITRATE [Suspect]
     Active Substance: FENTANYL CITRATE
     Route: 062
     Dates: start: 20231230, end: 20240102
  3. SOMATOSTATIN [Concomitant]
     Active Substance: SOMATOSTATIN
     Indication: Haemostasis
     Dates: start: 20231227, end: 20240101
  4. TERLIPRESSIN [Concomitant]
     Active Substance: TERLIPRESSIN
     Indication: Haemostasis
     Dates: start: 20231227, end: 20240101
  5. OMEPRAZOLE [Concomitant]
     Active Substance: OMEPRAZOLE
     Indication: Haemostasis
     Dates: start: 20231227, end: 20240101
  6. RBC transfusion [Concomitant]
     Dates: start: 20231227
  7. RBC transfusion [Concomitant]
     Dates: start: 20231229
  8. PIPERACILLIN SODIUM [Concomitant]
     Active Substance: PIPERACILLIN SODIUM
     Dates: start: 20231227, end: 20240103
  9. TAZOBACTAM SODIUM [Concomitant]
     Active Substance: TAZOBACTAM SODIUM
     Dates: start: 20231227, end: 20240103
  10. ACETYLCYSTEINE [Concomitant]
     Active Substance: ACETYLCYSTEINE
     Dates: start: 20231227, end: 20240103
  11. ENTECAVIR [Concomitant]
     Active Substance: ENTECAVIR
     Dates: start: 20231116
  12. ENTECAVIR [Concomitant]
     Active Substance: ENTECAVIR
     Dates: start: 20231231

REACTIONS (6)
  - Gastrointestinal sounds abnormal [Recovered/Resolved]
  - Intestinal obstruction [Recovered/Resolved]
  - Constipation [Recovered/Resolved]
  - Nausea [Recovered/Resolved]
  - Vomiting [Recovered/Resolved]
  - Off label use [Unknown]
